FAERS Safety Report 19136255 (Version 1)
Quarter: 2021Q2

REPORT INFORMATION
  Report Type: Spontaneous
  Country: CN (occurrence: CN)
  Receive Date: 20210414
  Receipt Date: 20210414
  Transmission Date: 20210717
  Serious: Yes (Other)
  Sender: FDA-Public Use
  Company Number: CN-JNJFOC-20210414428

PATIENT

DRUGS (2)
  1. TOPIRAMATE. [Suspect]
     Active Substance: TOPIRAMATE
     Indication: EPILEPSY
     Dosage: NATIONAL MEDICINE PERMISSION NUMBER H20020555?150MG/TIME STRENGTH: 25MG
     Route: 048
  2. OXCARBAZEPINE. [Suspect]
     Active Substance: OXCARBAZEPINE
     Indication: EPILEPSY
     Dosage: NATIONAL MEDICINE PERMISSION NUMBER H20051518?STRENGTH: 0.3G  INITIALLY 8?10MG/(KG.D)
     Route: 048

REACTIONS (3)
  - Rash [Unknown]
  - Altered state of consciousness [Unknown]
  - Somnolence [Unknown]
